FAERS Safety Report 7293635-2 (Version None)
Quarter: 2011Q1

REPORT INFORMATION
  Report Type: 
  Country: None (occurrence: None)
  Receive Date: 20110215
  Receipt Date: 20110208
  Transmission Date: 20110831
  Serious: Yes (Other)
  Sender: FDA-Public Use
  Company Number: A0913411A

PATIENT
  Age: 69 Year
  Sex: Female

DRUGS (3)
  1. HYDROCHLOROTHIAZIDE [Concomitant]
  2. TYKERB [Suspect]
     Dosage: 1250MGD CONTINUOUS
     Route: 048
     Dates: start: 20091006, end: 20100326
  3. CAPECITABINE [Suspect]
     Dosage: 2000MGM2 SEE DOSAGE TEXT
     Route: 048
     Dates: start: 20091006, end: 20100326

REACTIONS (2)
  - DISEASE PROGRESSION [None]
  - LUNG NEOPLASM [None]
